FAERS Safety Report 4649866-0 (Version None)
Quarter: 2005Q2

REPORT INFORMATION
  Report Type: 
  Country: None (occurrence: None)
  Receive Date: 20050502
  Receipt Date: 20040720
  Transmission Date: 20051028
  Serious: Yes (Hospitalization)
  Sender: FDA-Public Use
  Company Number: US-KINGPHARMUSA00001-K200401077

PATIENT
  Age: 69 Year
  Sex: Male

DRUGS (8)
  1. ALTACE [Suspect]
     Indication: ANGINA PECTORIS
     Dosage: 2.5 MG, QD
     Route: 048
     Dates: start: 20040622, end: 20040706
  2. LOVENOX [Suspect]
     Indication: ANGINA UNSTABLE
     Dosage: 60 MG, QD
     Route: 058
     Dates: start: 20040608, end: 20040617
  3. LOPRESSOR [Suspect]
     Indication: ANGINA PECTORIS
     Dosage: 25 MG, QD
     Route: 048
     Dates: start: 20040608
  4. ASPIRIN [Concomitant]
     Dosage: 81 MG, UNK
     Route: 048
     Dates: start: 20040608
  5. PLAVIX [Concomitant]
     Dosage: 75 MG, UNK
     Route: 048
     Dates: start: 20040608, end: 20040618
  6. TRANSDERM-NITRO [Concomitant]
     Dosage: .2 MG, UNK
     Route: 061
     Dates: start: 20040608
  7. DOMPERIDONE [Concomitant]
     Dosage: 10 MG, UNK
     Route: 048
     Dates: start: 20040608
  8. LIPITOR [Concomitant]
     Dosage: 10 MG, UNK
     Route: 048
     Dates: start: 20040608

REACTIONS (8)
  - ASTHENIA [None]
  - CHEST PAIN [None]
  - DEHYDRATION [None]
  - DIARRHOEA [None]
  - DIZZINESS [None]
  - HYPONATRAEMIA [None]
  - HYPOTENSION [None]
  - WEIGHT DECREASED [None]
